FAERS Safety Report 9014317 (Version 1)
Quarter: 2013Q1

REPORT INFORMATION
  Report Type: Spontaneous
  Country: US (occurrence: US)
  Receive Date: 20130115
  Receipt Date: 20130115
  Transmission Date: 20140127
  Serious: Yes (Death)
  Sender: FDA-Public Use
  Company Number: US-JNJFOC-20130105413

PATIENT
  Age: 57 Year
  Sex: Female

DRUGS (12)
  1. IBUPROFEN [Suspect]
     Indication: SUICIDE ATTEMPT
     Route: 048
  2. ACETAMINOPHEN [Suspect]
     Route: 048
  3. ACETAMINOPHEN [Suspect]
     Indication: SUICIDE ATTEMPT
     Route: 048
  4. ATENOLOL [Suspect]
     Indication: SUICIDE ATTEMPT
     Route: 048
  5. ACETAMINOPHEN\HYDROCODONE [Suspect]
     Indication: SUICIDE ATTEMPT
     Route: 048
  6. CITALOPRAM [Suspect]
     Indication: SUICIDE ATTEMPT
     Route: 048
  7. OXYCODONE [Suspect]
     Indication: SUICIDE ATTEMPT
     Route: 048
  8. CLONAZEPAM [Suspect]
     Indication: SUICIDE ATTEMPT
     Route: 048
  9. BROMPHENIRAMINE [Suspect]
     Indication: SUICIDE ATTEMPT
     Route: 048
  10. GABAPENTIN [Suspect]
     Indication: SUICIDE ATTEMPT
     Route: 048
  11. CELECOXIB [Suspect]
     Indication: SUICIDE ATTEMPT
     Route: 048
  12. HYDROMORPHONE [Suspect]
     Indication: SUICIDE ATTEMPT
     Route: 048

REACTIONS (1)
  - Toxicity to various agents [Fatal]
